FAERS Safety Report 8965007 (Version 3)
Quarter: 2013Q1

REPORT INFORMATION
  Report Type: Spontaneous
  Country: PL (occurrence: PL)
  Receive Date: 20121213
  Receipt Date: 20130327
  Transmission Date: 20140127
  Serious: Yes (Hospitalization)
  Sender: FDA-Public Use
  Company Number: PL-BRISTOL-MYERS SQUIBB COMPANY-17177163

PATIENT
  Age: 31 Year
  Sex: Male

DRUGS (1)
  1. ABILIFY [Suspect]
     Dates: start: 201102

REACTIONS (5)
  - Pulmonary oedema [Recovering/Resolving]
  - Upper respiratory tract infection [Recovering/Resolving]
  - Blood creatinine increased [Unknown]
  - Somnolence [Unknown]
  - Irritability [Unknown]
